FAERS Safety Report 19636519 (Version 2)
Quarter: 2021Q3

REPORT INFORMATION
  Report Type: Spontaneous
  Country: US (occurrence: US)
  Receive Date: 20210729
  Receipt Date: 20210806
  Transmission Date: 20211014
  Serious: Yes (Hospitalization, Other)
  Sender: FDA-Public Use
  Company Number: US-TEVA-2021-US-1935861

PATIENT
  Age: 86 Year
  Sex: Female

DRUGS (14)
  1. LISINOPRIL. [Concomitant]
     Active Substance: LISINOPRIL
     Indication: PRODUCT USED FOR UNKNOWN INDICATION
     Route: 065
  2. METOPROLOL SUCCINATE. [Interacting]
     Active Substance: METOPROLOL SUCCINATE
     Indication: PRODUCT USED FOR UNKNOWN INDICATION
     Dosage: 50 MILLIGRAM DAILY;
     Route: 065
  3. TRAMADOL. [Concomitant]
     Active Substance: TRAMADOL
     Indication: PAIN
     Dosage: THREE TIMES DAILY AS NEEDED
     Route: 048
  4. LORATADINE. [Interacting]
     Active Substance: LORATADINE
     Indication: PRODUCT USED FOR UNKNOWN INDICATION
     Dosage: 10 MILLIGRAM DAILY;
     Route: 065
  5. TRAZODONE [Interacting]
     Active Substance: TRAZODONE HYDROCHLORIDE
     Indication: PRODUCT USED FOR UNKNOWN INDICATION
     Dosage: 100 MILLIGRAM DAILY; AT BEDTIME
     Route: 065
  6. DIPHENHYDRAMINE. [Interacting]
     Active Substance: DIPHENHYDRAMINE
     Indication: SLEEP DISORDER
     Dosage: 50 MILLIGRAM DAILY; TAKING NIGHTLY; FORMULATION: LIQUID
     Route: 048
     Dates: start: 2020
  7. SIMETHICONE (DIMETHICONE) [Concomitant]
     Active Substance: DIMETHICONE
     Indication: PRODUCT USED FOR UNKNOWN INDICATION
     Dosage: CHEW 1 THREE TIMES DAILY
     Route: 065
  8. LIDOCAINE. [Concomitant]
     Active Substance: LIDOCAINE
     Indication: PAIN
     Route: 065
  9. PRAVASTATIN. [Concomitant]
     Active Substance: PRAVASTATIN
     Indication: PRODUCT USED FOR UNKNOWN INDICATION
     Route: 065
  10. MELATONIN [Concomitant]
     Active Substance: MELATONIN
     Indication: INITIAL INSOMNIA
     Route: 060
  11. APIXABAN [Concomitant]
     Active Substance: APIXABAN
     Indication: PRODUCT USED FOR UNKNOWN INDICATION
     Route: 065
  12. MELATONIN [Concomitant]
     Active Substance: MELATONIN
     Indication: INITIAL INSOMNIA
     Dosage: AT BEDTIME
     Route: 065
  13. DONEPEZIL. [Suspect]
     Active Substance: DONEPEZIL
     Indication: PRODUCT USED FOR UNKNOWN INDICATION
     Dosage: 5 MILLIGRAM DAILY;
     Route: 065
  14. ACETAMINOPHEN. [Concomitant]
     Active Substance: ACETAMINOPHEN
     Indication: PAIN
     Dosage: ER
     Route: 065

REACTIONS (12)
  - Limb injury [Recovering/Resolving]
  - Drug interaction [Unknown]
  - Injury [Recovering/Resolving]
  - Urinary tract infection bacterial [Recovering/Resolving]
  - Decreased appetite [Recovering/Resolving]
  - Intentional product misuse [Recovering/Resolving]
  - Hypokalaemia [Recovering/Resolving]
  - Initial insomnia [Recovering/Resolving]
  - Sepsis [Recovering/Resolving]
  - Urinary retention [Recovering/Resolving]
  - Hypotension [Recovering/Resolving]
  - Fall [Recovering/Resolving]
